FAERS Safety Report 18369583 (Version 2)
Quarter: 2022Q4

REPORT INFORMATION
  Report Type: Spontaneous
  Country: US (occurrence: US)
  Receive Date: 20201012
  Receipt Date: 20221013
  Transmission Date: 20230113
  Serious: Yes (Hospitalization)
  Sender: FDA-Public Use
  Company Number: US-CELLTRION INC.-2020US019864

PATIENT

DRUGS (2)
  1. INFLIXIMAB [Suspect]
     Active Substance: INFLIXIMAB
     Indication: Crohn^s disease
     Dosage: SINCE 5 MONTHS
  2. INFLIXIMAB [Suspect]
     Active Substance: INFLIXIMAB
     Dosage: MOST RECENT ADMINISTRATION BEING 3 WEEKS PREVIOUSLY

REACTIONS (2)
  - Drug-induced liver injury [Unknown]
  - Autoimmune hepatitis [Unknown]
